FAERS Safety Report 4613704-2 (Version None)
Quarter: 2005Q1

REPORT INFORMATION
  Report Type: 
  Country: None (occurrence: None)
  Receive Date: 20050321
  Receipt Date: 20050224
  Transmission Date: 20050727
  Serious: Yes (Hospitalization)
  Sender: FDA-Public Use
  Company Number: IE-BRISTOL-MYERS SQUIBB COMPANY-12875332

PATIENT
  Age: 51 Year
  Sex: Female

DRUGS (7)
  1. PACLITAXEL [Suspect]
     Indication: BREAST CANCER
     Route: 042
     Dates: start: 20050208, end: 20050208
  2. CYCLOPHOSPHAMIDE [Suspect]
     Indication: BREAST CANCER
     Route: 042
     Dates: start: 20041228, end: 20041228
  3. GEMCITABINE [Suspect]
     Indication: BREAST CANCER
     Route: 042
     Dates: start: 20050215, end: 20050215
  4. EPIRUBICIN [Suspect]
     Indication: BREAST CANCER
     Route: 042
     Dates: start: 20041228, end: 20041228
  5. GAMANIL [Concomitant]
     Route: 048
  6. ONDANSETRON [Concomitant]
     Route: 042
     Dates: start: 20050307, end: 20050307
  7. EMEND [Concomitant]
     Route: 048
     Dates: start: 20050307, end: 20050307

REACTIONS (6)
  - ASTHENIA [None]
  - BODY TEMPERATURE INCREASED [None]
  - DIARRHOEA [None]
  - DYSPNOEA [None]
  - PAIN [None]
  - PYREXIA [None]
